FAERS Safety Report 26004574 (Version 1)
Quarter: 2025Q4

REPORT INFORMATION
  Report Type: Spontaneous
  Country: US (occurrence: US)
  Receive Date: 20251106
  Receipt Date: 20251106
  Transmission Date: 20260118
  Serious: No
  Sender: BAUSCH AND LOMB
  Company Number: US-BAUSCHBL-2025BNL031278

PATIENT
  Age: 88 Year
  Sex: Female

DRUGS (3)
  1. XIIDRA [Suspect]
     Active Substance: LIFITEGRAST
     Indication: Product used for unknown indication
  2. BLINK TEARS [Suspect]
     Active Substance: POLYETHYLENE GLYCOL 400
     Indication: Product used for unknown indication
  3. BLINK TEARS [Suspect]
     Active Substance: POLYETHYLENE GLYCOL 400

REACTIONS (3)
  - Eye irritation [Unknown]
  - Vision blurred [Unknown]
  - Discomfort [Recovering/Resolving]
